FAERS Safety Report 19234109 (Version 1)
Quarter: 2021Q2

REPORT INFORMATION
  Report Type: Spontaneous
  Country: FR (occurrence: FR)
  Receive Date: 20210508
  Receipt Date: 20210508
  Transmission Date: 20210717
  Serious: Yes (Life-Threatening)
  Sender: FDA-Public Use
  Company Number: FR-TEVA-2021-FR-1908311

PATIENT
  Age: 61 Year
  Sex: Female
  Weight: 96 kg

DRUGS (8)
  1. KARDEGIC [Suspect]
     Active Substance: ASPIRIN DL-LYSINE
     Indication: PRODUCT USED FOR UNKNOWN INDICATION
     Dosage: YEAR:UNIT DOSE:1DOSAGEFORM
     Route: 048
     Dates: end: 20210321
  2. DAFALGAN [Suspect]
     Active Substance: ACETAMINOPHEN
     Indication: PAIN
     Dosage: YEAR:UNIT DOSE:2DOSAGEFORM
     Route: 048
     Dates: end: 20210321
  3. DIAMICRON [Suspect]
     Active Substance: GLICLAZIDE
     Indication: TYPE 2 DIABETES MELLITUS
     Dosage: YEAR:UNIT DOSE:2DOSAGEFORM
     Route: 048
     Dates: end: 20210321
  4. SIMVASTATINE [Suspect]
     Active Substance: SIMVASTATIN
     Indication: PRODUCT USED FOR UNKNOWN INDICATION
     Dosage: YEAR:UNIT DOSE:20MILLIGRAM
     Route: 048
     Dates: end: 20210321
  5. FORTZAAR [Suspect]
     Active Substance: HYDROCHLOROTHIAZIDE\LOSARTAN POTASSIUM
     Indication: HYPERTENSION
     Dosage: YEAR:UNIT DOSE:1DOSAGEFORM
     Route: 048
     Dates: end: 20210321
  6. TANGANIL [Suspect]
     Active Substance: ACETYLLEUCINE, L-
     Indication: VESTIBULAR NEURONITIS
     Dosage: YEAR:UNIT DOSE:3DOSAGEFORM
     Route: 048
     Dates: end: 20210321
  7. OZEMPIC [Suspect]
     Active Substance: SEMAGLUTIDE
     Indication: TYPE 2 DIABETES MELLITUS
     Dosage: YEAR:UNIT DOSE:1DOSAGEFORM
     Route: 058
     Dates: end: 20210321
  8. METFORMINE [Suspect]
     Active Substance: METFORMIN HYDROCHLORIDE
     Indication: TYPE 2 DIABETES MELLITUS
     Dosage: YEAR:UNIT DOSE:3GRAM
     Route: 048
     Dates: end: 20210321

REACTIONS (3)
  - Hypoglycaemia [Recovered/Resolved]
  - Lactic acidosis [Recovered/Resolved]
  - Renal failure [Recovered/Resolved]

NARRATIVE: CASE EVENT DATE: 20210321
